FAERS Safety Report 18997852 (Version 4)
Quarter: 2021Q2

REPORT INFORMATION
  Report Type: Other
  Country: BR (occurrence: BR)
  Receive Date: 20210311
  Receipt Date: 20210513
  Transmission Date: 20210717
  Serious: No
  Sender: FDA-Public Use
  Company Number: BR-ROCHE-2786041

PATIENT
  Age: 44 Year
  Sex: Female

DRUGS (2)
  1. OCREVUS [Suspect]
     Active Substance: OCRELIZUMAB
     Indication: RELAPSING-REMITTING MULTIPLE SCLEROSIS
     Dosage: DAY 1 AND DAY 15 300 MG  AND THE 600 MG ONCE EVERY 6 MONTHS
     Route: 042
     Dates: start: 20201020
  2. PREDNISONE. [Concomitant]
     Active Substance: PREDNISONE

REACTIONS (5)
  - Erythema [Recovered/Resolved]
  - Headache [Recovered/Resolved]
  - Infusion related reaction [Recovered/Resolved]
  - Asthenia [Recovered/Resolved]
  - COVID-19 [Recovered/Resolved]

NARRATIVE: CASE EVENT DATE: 20201020
